FAERS Safety Report 25216971 (Version 2)
Quarter: 2025Q2

REPORT INFORMATION
  Report Type: Spontaneous
  Country: FR (occurrence: FR)
  Receive Date: 20250419
  Receipt Date: 20250531
  Transmission Date: 20250716
  Serious: Yes (Hospitalization)
  Sender: AUROBINDO
  Company Number: FR-PFIZER INC-PV202400150600

PATIENT
  Age: 81 Year
  Sex: Male
  Weight: 71 kg

DRUGS (9)
  1. OXALIPLATIN [Suspect]
     Active Substance: OXALIPLATIN
     Indication: Adenocarcinoma of colon
     Route: 042
     Dates: start: 20240904, end: 20241001
  2. LEVOLEUCOVORIN [Suspect]
     Active Substance: LEVOLEUCOVORIN
     Indication: Adenocarcinoma of colon
     Route: 042
     Dates: start: 20240904, end: 20241001
  3. ERBITUX [Suspect]
     Active Substance: CETUXIMAB
     Indication: Adenocarcinoma of colon
     Dosage: 467.5 MILLIGRAM, EVERY WEEK
     Route: 042
     Dates: start: 20240904, end: 20241008
  4. FLUOROURACIL [Suspect]
     Active Substance: FLUOROURACIL
     Indication: Adenocarcinoma of colon
     Route: 042
     Dates: start: 20240904, end: 20241003
  5. SODIUM BICARBONATE [Concomitant]
     Active Substance: SODIUM BICARBONATE
     Indication: Mucosal inflammation
     Route: 002
     Dates: start: 20240905, end: 20241107
  6. PROCAINE [Concomitant]
     Active Substance: PROCAINE
     Indication: Mucosal inflammation
     Route: 002
     Dates: start: 20240905, end: 20240907
  7. Ulcar [Concomitant]
     Indication: Mucosal inflammation
     Route: 002
     Dates: start: 20240905, end: 20241007
  8. ACETAMINOPHEN\CODEINE PHOSPHATE [Concomitant]
     Active Substance: ACETAMINOPHEN\CODEINE PHOSPHATE
     Indication: Mucosal inflammation
     Route: 048
     Dates: start: 20241007
  9. DOLIPRANE [Concomitant]
     Active Substance: ACETAMINOPHEN
     Indication: Mucosal inflammation
     Dosage: 4000 MILLIGRAM, ONCE A DAY (1000 MG, EVERY 6 HOURS)
     Route: 048
     Dates: start: 20241007, end: 20241014

REACTIONS (2)
  - Stomatitis [Recovered/Resolved]
  - Mucosal inflammation [Recovered/Resolved]

NARRATIVE: CASE EVENT DATE: 20241008
